FAERS Safety Report 8185972-4 (Version None)
Quarter: 2012Q1

REPORT INFORMATION
  Report Type: 
  Country: None (occurrence: None)
  Receive Date: 20120305
  Receipt Date: 20120221
  Transmission Date: 20120608
  Serious: Yes (Congenital Anomaly)
  Sender: FDA-Public Use
  Company Number: HU-MYLANLABS-2012S1004124

PATIENT

DRUGS (4)
  1. DIAZEPAM [Suspect]
     Indication: EPILEPSY
     Route: 064
  2. PRIMIDONE [Suspect]
     Indication: EPILEPSY
     Route: 064
  3. MEPHENYTOIN [Suspect]
     Indication: EPILEPSY
     Route: 064
  4. PHENYTOIN [Suspect]
     Indication: EPILEPSY
     Route: 064

REACTIONS (6)
  - SYNDACTYLY [None]
  - MICROTIA [None]
  - CHOANAL ATRESIA [None]
  - PATENT DUCTUS ARTERIOSUS [None]
  - MATERNAL EXPOSURE DURING PREGNANCY [None]
  - COLOBOMA [None]
